FAERS Safety Report 7606086-5 (Version None)
Quarter: 2011Q3

REPORT INFORMATION
  Report Type: 
  Country: None (occurrence: None)
  Receive Date: 20110713
  Receipt Date: 20110707
  Transmission Date: 20111222
  Serious: Yes (Hospitalization)
  Sender: FDA-Public Use
  Company Number: US-ELI_LILLY_AND_COMPANY-US201107002626

PATIENT
  Sex: Female
  Weight: 84.807 kg

DRUGS (14)
  1. HUMALOG [Concomitant]
     Dosage: UNK, PRN
     Route: 058
  2. ZOCOR [Concomitant]
     Indication: BLOOD CHOLESTEROL
     Dosage: 10 MG, QD
     Route: 048
  3. BYETTA [Suspect]
     Dosage: 10 UG, BID
     Route: 058
     Dates: end: 20110626
  4. LOVAZA [Concomitant]
     Dosage: 2 G, UNK
     Route: 048
  5. TYLENOL (CAPLET) [Concomitant]
     Indication: PAIN
     Dosage: UNK, PRN
     Route: 048
  6. LANTUS [Concomitant]
     Indication: TYPE 2 DIABETES MELLITUS
     Dosage: 45 U, EACH EVENING
     Route: 058
  7. CALCIUM CARBONATE [Concomitant]
     Dosage: UNK
  8. ZETIA [Concomitant]
     Indication: BLOOD CHOLESTEROL
     Dosage: 10 MG, QD
     Route: 048
  9. ASPIRIN [Concomitant]
     Dosage: 81 UNK, UNK
     Route: 048
  10. HUMALOG [Concomitant]
     Indication: TYPE 2 DIABETES MELLITUS
     Dosage: 18 U, TID
     Route: 058
  11. LOVAZA [Concomitant]
     Dosage: 4 G, UNK
     Route: 048
  12. BYETTA [Suspect]
     Indication: TYPE 2 DIABETES MELLITUS
     Dosage: 5 UG, BID
     Route: 058
  13. GLUMETZA [Concomitant]
     Indication: TYPE 2 DIABETES MELLITUS
     Dosage: 1000 MG, UNK
     Route: 048
  14. DIOVAN [Concomitant]
     Indication: PROPHYLAXIS
     Dosage: 20 UNK, UNK
     Route: 048

REACTIONS (9)
  - CHEST PAIN [None]
  - ENZYME ABNORMALITY [None]
  - AGEUSIA [None]
  - ABDOMINAL PAIN UPPER [None]
  - WEIGHT DECREASED [None]
  - ABDOMINAL DISTENSION [None]
  - ANOSMIA [None]
  - OFF LABEL USE [None]
  - PANCREATITIS [None]
